FAERS Safety Report 4727485-5 (Version None)
Quarter: 2005Q3

REPORT INFORMATION
  Report Type: 
  Country: None (occurrence: None)
  Receive Date: 20050728
  Receipt Date: 20050616
  Transmission Date: 20060218
  Serious: Yes (Other)
  Sender: FDA-Public Use
  Company Number: ES-ROCHE-407845

PATIENT
  Age: 65 Year
  Sex: Female
  Weight: 74 kg

DRUGS (1)
  1. XELODA [Suspect]
     Indication: BREAST CANCER
     Dosage: FREQUENCY OF DOSING NOT REPORTED.
     Route: 048
     Dates: start: 20050519, end: 20050531

REACTIONS (2)
  - DISORIENTATION [None]
  - PERIPHERAL OCCLUSIVE DISEASE [None]
